FAERS Safety Report 15177866 (Version 2)
Quarter: 2018Q3

REPORT INFORMATION
  Report Type: Report from Study
  Country: US (occurrence: US)
  Receive Date: 20180720
  Receipt Date: 20180809
  Transmission Date: 20181010
  Serious: Yes (Other)
  Sender: FDA-Public Use
  Company Number: US-AMGEN-USASL2018077103

PATIENT
  Age: 59 Year
  Sex: Female

DRUGS (2)
  1. REPATHA [Suspect]
     Active Substance: EVOLOCUMAB
     Indication: BLOOD TRIGLYCERIDES INCREASED
     Dosage: 140 MG, Q2WK
     Route: 058
     Dates: start: 201805, end: 201805
  2. REPATHA [Suspect]
     Active Substance: EVOLOCUMAB
     Indication: HYPERLIPIDAEMIA
     Dosage: 140 MG, Q2WK
     Route: 058
     Dates: start: 201805, end: 20180531

REACTIONS (12)
  - Abdominal pain upper [Unknown]
  - Diarrhoea [Unknown]
  - Hypersensitivity [Unknown]
  - Abnormal loss of weight [Unknown]
  - Feeling abnormal [Unknown]
  - Rhinorrhoea [Unknown]
  - Mobility decreased [Unknown]
  - Hypophagia [Unknown]
  - Myalgia [Unknown]
  - Vomiting [Unknown]
  - Nausea [Unknown]
  - Chest discomfort [Unknown]

NARRATIVE: CASE EVENT DATE: 2018
